FAERS Safety Report 8520126-0 (Version None)
Quarter: 2012Q3

REPORT INFORMATION
  Report Type: 
  Country: None (occurrence: None)
  Receive Date: 20120719
  Receipt Date: 20120706
  Transmission Date: 20120928
  Serious: Yes (Other)
  Sender: FDA-Public Use
  Company Number: JP-UCBSA-061614

PATIENT
  Age: 33 Year
  Sex: Female

DRUGS (20)
  1. DEPAKENE [Concomitant]
     Dosage: 800 MG DAILY
     Route: 048
     Dates: start: 20120321, end: 20120403
  2. TEGRETOL [Concomitant]
     Dosage: 400 MG DAILY
     Route: 048
     Dates: start: 20120112, end: 20120113
  3. KEPPRA [Suspect]
     Route: 048
     Dates: start: 20120403, end: 20120101
  4. KEPPRA [Suspect]
     Route: 048
     Dates: start: 20120403, end: 20120101
  5. TEGRETOL [Concomitant]
     Dosage: 800 MG DAILY
     Route: 048
     Dates: start: 20120114, end: 20120320
  6. KEPPRA [Suspect]
     Route: 048
     Dates: start: 20111208, end: 20120320
  7. TEGRETOL [Concomitant]
     Indication: PARTIAL SEIZURES WITH SECONDARY GENERALISATION
     Dosage: 800 MG DAILY
     Route: 048
     Dates: end: 20120111
  8. TEGRETOL [Concomitant]
     Indication: COMPLEX PARTIAL SEIZURES
     Dosage: 800 MG DAILY
     Route: 048
     Dates: end: 20120111
  9. KEPPRA [Suspect]
     Indication: PARTIAL SEIZURES WITH SECONDARY GENERALISATION
     Route: 048
     Dates: start: 20111102, end: 20111207
  10. KEPPRA [Suspect]
     Route: 048
     Dates: start: 20111208, end: 20120320
  11. DEPAKENE [Concomitant]
     Indication: COMPLEX PARTIAL SEIZURES
     Dosage: 1200 MG DAILY
     Route: 048
     Dates: end: 20120320
  12. ZONISAMIDE [Concomitant]
     Indication: PARTIAL SEIZURES WITH SECONDARY GENERALISATION
     Dosage: 200 MG DAILY
     Route: 048
     Dates: start: 20120403
  13. KEPPRA [Suspect]
     Route: 048
     Dates: start: 20120321, end: 20120402
  14. TEGRETOL [Concomitant]
     Dosage: 800 MG DAILY
     Route: 048
     Dates: start: 20120114, end: 20120320
  15. KEPPRA [Suspect]
     Indication: COMPLEX PARTIAL SEIZURES
     Route: 048
     Dates: start: 20111102, end: 20111207
  16. DEPAKENE [Concomitant]
     Indication: PARTIAL SEIZURES WITH SECONDARY GENERALISATION
     Dosage: 1200 MG DAILY
     Route: 048
     Dates: end: 20120320
  17. TEGRETOL [Concomitant]
     Dosage: 400 MG DAILY
     Route: 048
     Dates: start: 20120112, end: 20120113
  18. ZONISAMIDE [Concomitant]
     Indication: COMPLEX PARTIAL SEIZURES
     Dosage: 200 MG DAILY
     Route: 048
     Dates: start: 20120403
  19. KEPPRA [Suspect]
     Route: 048
     Dates: start: 20120321, end: 20120402
  20. DEPAKENE [Concomitant]
     Dosage: 800 MG DAILY
     Route: 048
     Dates: start: 20120321, end: 20120403

REACTIONS (1)
  - STATUS EPILEPTICUS [None]
